FAERS Safety Report 8849085 (Version 2)
Quarter: 2013Q3

REPORT INFORMATION
  Report Type: Spontaneous
  Country: ES (occurrence: ES)
  Receive Date: 20121019
  Receipt Date: 20130927
  Transmission Date: 20140515
  Serious: Yes (Other)
  Sender: FDA-Public Use
  Company Number: ES-MILLENNIUM PHARMACEUTICALS, INC.-2012-07057

PATIENT
  Sex: 0

DRUGS (3)
  1. VELCADE [Suspect]
     Indication: PLASMA CELL MYELOMA
     Dosage: 1.3 MG/M2, UNK
     Route: 042
     Dates: end: 20121008
  2. ZOMETA [Suspect]
     Indication: PLASMA CELL MYELOMA
     Route: 065
  3. DEXAMETHASONE [Suspect]
     Indication: PLASMA CELL MYELOMA
     Dosage: 40 MG, UNK
     Route: 065

REACTIONS (2)
  - Blepharitis [Recovered/Resolved]
  - Pain in jaw [Recovered/Resolved]
